FAERS Safety Report 8164598-2 (Version None)
Quarter: 2012Q1

REPORT INFORMATION
  Report Type: 
  Country: None (occurrence: None)
  Receive Date: 20120227
  Receipt Date: 20120215
  Transmission Date: 20120608
  Serious: Yes (Other)
  Sender: FDA-Public Use
  Company Number: DE-AMGEN-DEUCT2011026724

PATIENT
  Age: 23 Year
  Sex: Female
  Weight: 68 kg

DRUGS (3)
  1. ARCOXIA [Concomitant]
     Indication: ANKYLOSING SPONDYLITIS
     Dosage: UNK
     Dates: start: 20100701, end: 20110101
  2. PANTOZOL                           /01263202/ [Concomitant]
     Dosage: UNK
     Dates: end: 20110101
  3. ETANERCEPT [Suspect]
     Indication: ANKYLOSING SPONDYLITIS
     Dosage: 50 MG, QWK
     Route: 058
     Dates: start: 20110117, end: 20110228

REACTIONS (1)
  - MALIGNANT MELANOMA IN SITU [None]
